FAERS Safety Report 9176164 (Version 2)
Quarter: 2013Q3

REPORT INFORMATION
  Report Type: Spontaneous
  Country: NO (occurrence: NO)
  Receive Date: 20130321
  Receipt Date: 20130830
  Transmission Date: 20140515
  Serious: Yes (Hospitalization, Other)
  Sender: FDA-Public Use
  Company Number: PHHY2013NO025411

PATIENT
  Age: 45 Year
  Sex: Female

DRUGS (4)
  1. RAMIPRIL [Suspect]
     Indication: HYPERTENSION
     Dosage: 5 MG, QD DAILY
     Route: 048
     Dates: start: 2011
  2. METFORMIN ACTAVIS [Suspect]
     Indication: TYPE 2 DIABETES MELLITUS
     Dosage: 500 MG, QD DAILY
     Route: 048
     Dates: start: 201103, end: 20110606
  3. INSULATARD FLEXPEN [Suspect]
     Indication: TYPE 2 DIABETES MELLITUS
     Dosage: 100 IU/ML, USED AS AGREED WITH PHYSICIAN
     Dates: start: 2011
  4. IMIGRAN [Suspect]
     Indication: MIGRAINE
     Dosage: 100 MG, PRN
     Route: 048
     Dates: end: 20110624

REACTIONS (1)
  - Abortion spontaneous [Unknown]
